FAERS Safety Report 8642960 (Version 3)
Quarter: 2012Q4

REPORT INFORMATION
  Report Type: 
  Country: US (occurrence: US)
  Receive Date: 20120629
  Receipt Date: 20121207
  Transmission Date: 20130627
  Serious: Yes (Other)
  Sender: FDA-Public Use
  Company Number: US-US-EMD SERONO, INC.-7142916

PATIENT
  Sex: Female

DRUGS (3)
  1. REBIF [Suspect]
     Indication: MULTIPLE SCLEROSIS
     Route: 058
     Dates: start: 20060705
  2. LEXAPRO [Concomitant]
     Indication: DEPRESSION
     Dates: start: 2006
  3. KLONOPIN [Concomitant]
     Indication: DEPRESSION
     Dates: start: 2006

REACTIONS (2)
  - Suicidal behaviour [Recovered/Resolved]
  - Depression [Not Recovered/Not Resolved]
